FAERS Safety Report 4452425-6 (Version None)
Quarter: 2004Q3

REPORT INFORMATION
  Report Type: 
  Country: None (occurrence: None)
  Receive Date: 20040917
  Receipt Date: 20031130
  Transmission Date: 20050211
  Serious: Yes (Other)
  Sender: FDA-Public Use
  Company Number: PHRM2003DZ03208

PATIENT
  Age: 43 Year
  Sex: Male
  Weight: 92 kg

DRUGS (2)
  1. LESCOL [Suspect]
     Indication: MIXED HYPERLIPIDAEMIA
     Dosage: 40 MG, QD
     Route: 048
     Dates: start: 20030801
  2. LESCOL [Suspect]
     Dosage: 40 MG, BID
     Route: 048
     Dates: end: 20031030

REACTIONS (6)
  - ASTHENIA [None]
  - BLOOD CREATINE PHOSPHOKINASE INCREASED [None]
  - HYPOTHYROIDISM [None]
  - MUSCLE CRAMP [None]
  - PAIN [None]
  - TONGUE DISORDER [None]
